FAERS Safety Report 18618701 (Version 1)
Quarter: 2020Q4

REPORT INFORMATION
  Report Type: Spontaneous
  Country: US (occurrence: US)
  Receive Date: 20201215
  Receipt Date: 20201215
  Transmission Date: 20210114
  Serious: Yes (Hospitalization)
  Sender: FDA-Public Use
  Company Number: US-MYLANLABS-2020M1102172

PATIENT
  Age: 10 Year
  Sex: Male

DRUGS (3)
  1. RISPERIDONE. [Suspect]
     Active Substance: RISPERIDONE
     Indication: AGGRESSION
     Dosage: 0.5 MILLIGRAM, QD NIGHTLY
     Route: 065
  2. DIPHENHYDRAMINE. [Suspect]
     Active Substance: DIPHENHYDRAMINE
     Indication: DYSTONIA
     Dosage: 25 MILLIGRAM
     Route: 042
  3. RISPERIDONE. [Suspect]
     Active Substance: RISPERIDONE
     Indication: INTENTIONAL SELF-INJURY
     Dosage: 1 MILLIGRAM, BID
     Route: 065

REACTIONS (3)
  - Off label use [Unknown]
  - Dystonia [Recovered/Resolved]
  - Drug ineffective for unapproved indication [Unknown]
